FAERS Safety Report 8988745 (Version 1)
Quarter: 2012Q4

REPORT INFORMATION
  Report Type: Spontaneous
  Country: US (occurrence: None)
  Receive Date: 20121224
  Receipt Date: 20121224
  Transmission Date: 20130627
  Serious: Yes (Death)
  Sender: FDA-Public Use
  Company Number: None

PATIENT
  Age: 90 Year
  Weight: 43.4 kg

DRUGS (2)
  1. NAPROXEN [Suspect]
  2. CELEBREX [Suspect]

REACTIONS (1)
  - Haematemesis [None]
